FAERS Safety Report 5091081-3 (Version None)
Quarter: 2006Q3

REPORT INFORMATION
  Report Type: 
  Country: None (occurrence: None)
  Receive Date: 20060829
  Receipt Date: 20060818
  Transmission Date: 20061208
  Serious: Yes (Other)
  Sender: FDA-Public Use
  Company Number: DE-JNJFOC-20060804458

PATIENT
  Age: 26 Year
  Sex: Male

DRUGS (1)
  1. VERMOX [Suspect]
     Indication: ENTEROBIASIS
     Route: 048

REACTIONS (3)
  - HEADACHE [None]
  - MYALGIA [None]
  - ORAL MUCOSAL EXFOLIATION [None]
